FAERS Safety Report 4549627-7 (Version None)
Quarter: 2005Q1

REPORT INFORMATION
  Report Type: 
  Country: None (occurrence: None)
  Receive Date: 20050111
  Receipt Date: 20040423
  Transmission Date: 20050727
  Serious: Yes (Other)
  Sender: FDA-Public Use
  Company Number: US-GLAXOSMITHKLINE-A0508352A

PATIENT
  Age: 44 Year
  Sex: Female

DRUGS (6)
  1. PAXIL [Suspect]
     Indication: DEPRESSION
     Route: 048
     Dates: start: 19930101
  2. PAXIL CR [Suspect]
     Indication: DEPRESSION
     Route: 048
     Dates: start: 20030101
  3. ATARAX [Concomitant]
  4. AMBIEN [Concomitant]
  5. RESTORIL [Concomitant]
  6. INDERAL [Concomitant]

REACTIONS (6)
  - HALLUCINATION [None]
  - MUSCLE TWITCHING [None]
  - NEGATIVE THOUGHTS [None]
  - SUICIDAL IDEATION [None]
  - THINKING ABNORMAL [None]
  - WEIGHT INCREASED [None]
